FAERS Safety Report 12076863 (Version 5)
Quarter: 2017Q2

REPORT INFORMATION
  Report Type: Report from Study
  Country: JP (occurrence: JP)
  Receive Date: 20160215
  Receipt Date: 20170613
  Transmission Date: 20170829
  Serious: Yes (Disabling)
  Sender: FDA-Public Use
  Company Number: JP-ASTELLAS-2010JP003595

PATIENT
  Age: 15 Year
  Sex: Female
  Weight: 63 kg

DRUGS (86)
  1. ENDOXAN                            /00021102/ [Concomitant]
     Active Substance: CYCLOPHOSPHAMIDE
     Indication: PRODUCT USED FOR UNKNOWN INDICATION
     Dosage: UNK UNK, UNKNOWN FREQ.
     Route: 065
  2. ENDOXAN                            /00021101/ [Concomitant]
     Active Substance: CYCLOPHOSPHAMIDE
     Indication: PRODUCT USED FOR UNKNOWN INDICATION
     Dosage: UNK UNK, UNKNOWN FREQ.
     Route: 065
  3. DUROTEP [Concomitant]
     Active Substance: FENTANYL
     Indication: OSTEONECROSIS
  4. FENTOS [Concomitant]
     Active Substance: FENTANYL
     Indication: OSTEONECROSIS
     Route: 062
     Dates: start: 20140708
  5. PREDNISOLONE. [Suspect]
     Active Substance: PREDNISOLONE
     Route: 048
     Dates: start: 20090218, end: 20090317
  6. PREDNISOLONE. [Suspect]
     Active Substance: PREDNISOLONE
     Route: 048
     Dates: start: 20090729, end: 20090915
  7. PREDNISOLONE. [Suspect]
     Active Substance: PREDNISOLONE
     Route: 048
     Dates: start: 20091021, end: 20091110
  8. PREDNISOLONE. [Suspect]
     Active Substance: PREDNISOLONE
     Route: 048
     Dates: start: 20100215, end: 20100314
  9. METHYLPREDNISOLONE. [Suspect]
     Active Substance: METHYLPREDNISOLONE
     Route: 048
     Dates: start: 20080604, end: 20080611
  10. METHYLPREDNISOLONE. [Suspect]
     Active Substance: METHYLPREDNISOLONE
     Route: 048
     Dates: start: 20080917, end: 20081019
  11. METHYLPREDNISOLONE. [Suspect]
     Active Substance: METHYLPREDNISOLONE
     Route: 048
     Dates: start: 20081222, end: 20090120
  12. NU-LOTAN [Concomitant]
     Active Substance: LOSARTAN POTASSIUM
     Indication: LUPUS NEPHRITIS
     Route: 048
     Dates: start: 20080528, end: 20080603
  13. NU-LOTAN [Concomitant]
     Active Substance: LOSARTAN POTASSIUM
     Route: 048
     Dates: start: 20110411, end: 20121119
  14. IMURAN [Concomitant]
     Active Substance: AZATHIOPRINE
     Route: 048
     Dates: start: 20101220, end: 20121118
  15. FERROMIA                           /00023520/ [Concomitant]
     Indication: IRON DEFICIENCY ANAEMIA
     Route: 048
     Dates: start: 20120625, end: 20130925
  16. PREDNISOLONE. [Suspect]
     Active Substance: PREDNISOLONE
     Indication: PYREXIA
     Route: 048
     Dates: start: 20080521, end: 20080527
  17. PREDNISOLONE. [Suspect]
     Active Substance: PREDNISOLONE
     Route: 048
     Dates: start: 20090513, end: 20090616
  18. PREDNISOLONE. [Suspect]
     Active Substance: PREDNISOLONE
     Route: 048
     Dates: start: 20091111, end: 20100117
  19. PREDNISOLONE. [Suspect]
     Active Substance: PREDNISOLONE
     Route: 048
     Dates: start: 20110307, end: 20110410
  20. PREDNISOLONE. [Suspect]
     Active Substance: PREDNISOLONE
     Route: 048
     Dates: start: 20110509, end: 20110605
  21. BENET [Concomitant]
     Active Substance: RISEDRONATE SODIUM
     Indication: OSTEOPOROSIS
     Route: 048
     Dates: start: 20090218, end: 20090616
  22. LIPOVAS [Concomitant]
     Active Substance: PRAVASTATIN SODIUM
     Indication: HYPERLIPIDAEMIA
     Route: 048
     Dates: start: 20080820, end: 20090728
  23. IMURAN [Concomitant]
     Active Substance: AZATHIOPRINE
     Route: 048
     Dates: start: 20130121
  24. NAUZELIN [Concomitant]
     Active Substance: DOMPERIDONE
     Indication: NAUSEA
     Route: 048
     Dates: start: 20130528, end: 20130925
  25. TACROLIMUS. [Suspect]
     Active Substance: TACROLIMUS
     Indication: LUPUS NEPHRITIS
     Route: 048
     Dates: start: 20080515, end: 20080519
  26. TACROLIMUS. [Suspect]
     Active Substance: TACROLIMUS
     Indication: BLOOD IMMUNOGLOBULIN G INCREASED
     Route: 048
     Dates: start: 20080520, end: 20111120
  27. PREDNISOLONE. [Suspect]
     Active Substance: PREDNISOLONE
     Route: 048
     Dates: start: 20090121, end: 20090217
  28. PREDNISOLONE. [Suspect]
     Active Substance: PREDNISOLONE
     Route: 048
     Dates: start: 20090916, end: 20091020
  29. PREDNISOLONE. [Suspect]
     Active Substance: PREDNISOLONE
     Route: 048
     Dates: start: 20101122, end: 20110306
  30. PREDNISOLONE. [Suspect]
     Active Substance: PREDNISOLONE
     Route: 048
     Dates: start: 20110606, end: 20110703
  31. PREDNISOLONE. [Suspect]
     Active Substance: PREDNISOLONE
     Route: 048
     Dates: start: 20140610, end: 20140804
  32. METHYLPREDNISOLONE. [Suspect]
     Active Substance: METHYLPREDNISOLONE
     Route: 048
     Dates: start: 20080716, end: 20080819
  33. PREDNISOLONE. [Suspect]
     Active Substance: PREDNISOLONE
     Route: 048
     Dates: start: 20090318, end: 20090512
  34. PREDNISOLONE. [Suspect]
     Active Substance: PREDNISOLONE
     Route: 048
     Dates: start: 20100315, end: 20100829
  35. PREDNISOLONE. [Suspect]
     Active Substance: PREDNISOLONE
     Route: 048
     Dates: start: 20110411, end: 20110508
  36. PREDNISOLONE. [Suspect]
     Active Substance: PREDNISOLONE
     Route: 048
     Dates: start: 20140108, end: 20140302
  37. PREDNISOLONE. [Suspect]
     Active Substance: PREDNISOLONE
     Route: 048
     Dates: start: 20140805
  38. METHYLPREDNISOLONE. [Suspect]
     Active Substance: METHYLPREDNISOLONE
     Route: 048
     Dates: start: 20081126, end: 20081221
  39. TRAMCET [Suspect]
     Active Substance: ACETAMINOPHEN\TRAMADOL
     Dosage: 4 TABLETS, ONCE DAILY
     Route: 048
     Dates: start: 20121022, end: 20130726
  40. WYPAX [Concomitant]
     Active Substance: LORAZEPAM
     Indication: DEPRESSION
     Route: 048
     Dates: end: 20080916
  41. RIVOTRIL [Concomitant]
     Active Substance: CLONAZEPAM
     Indication: ESSENTIAL TREMOR
     Dosage: 0.5 MG, ONCE DAILY
     Route: 048
     Dates: start: 20110509, end: 20120605
  42. LOXONIN [Concomitant]
     Active Substance: LOXOPROFEN SODIUM
     Indication: PRODUCT USED FOR UNKNOWN INDICATION
     Route: 048
     Dates: start: 20121226
  43. DUROTEP [Concomitant]
     Active Substance: FENTANYL
     Indication: OSTEONECROSIS
     Dosage: 2.1 MG, EVERY 3 DAYS
     Route: 062
     Dates: start: 20130729, end: 20140707
  44. PREDNISOLONE. [Suspect]
     Active Substance: PREDNISOLONE
     Indication: LUPUS NEPHRITIS
     Route: 048
     Dates: end: 20080520
  45. PREDNISOLONE. [Suspect]
     Active Substance: PREDNISOLONE
     Route: 048
     Dates: start: 20100830, end: 20100926
  46. PREDNISOLONE. [Suspect]
     Active Substance: PREDNISOLONE
     Route: 048
     Dates: start: 20110704, end: 20110731
  47. PREDNISOLONE. [Suspect]
     Active Substance: PREDNISOLONE
     Route: 048
     Dates: start: 20111121, end: 20140107
  48. METHYLPREDNISOLONE. [Suspect]
     Active Substance: METHYLPREDNISOLONE
     Indication: LUPUS NEPHRITIS
     Route: 048
     Dates: start: 20080528, end: 20080603
  49. METHYLPREDNISOLONE. [Suspect]
     Active Substance: METHYLPREDNISOLONE
     Route: 048
     Dates: start: 20080619, end: 20080701
  50. MUCOSTA [Concomitant]
     Active Substance: REBAMIPIDE
     Indication: GASTRIC ULCER
     Route: 048
     Dates: end: 20080819
  51. ONEALFA [Concomitant]
     Active Substance: ALFACALCIDOL
     Indication: PROPHYLAXIS
     Dosage: 0.5 ?G, ONCE DAILY
     Route: 048
  52. WARFARIN                           /00014803/ [Concomitant]
     Active Substance: WARFARIN
     Route: 048
     Dates: start: 20141023
  53. IMURAN [Concomitant]
     Active Substance: AZATHIOPRINE
     Indication: LUPUS NEPHRITIS
     Route: 048
     Dates: start: 20101004, end: 20101121
  54. VOLTAREN [Concomitant]
     Active Substance: DICLOFENAC SODIUM
     Indication: OSTEONECROSIS
     Route: 048
     Dates: start: 20100510, end: 20110828
  55. VOLTAREN [Concomitant]
     Active Substance: DICLOFENAC SODIUM
     Indication: OSTEONECROSIS
     Route: 048
     Dates: start: 20110829, end: 20121021
  56. GASLON [Concomitant]
     Active Substance: IRSOGLADINE MALEATE
     Route: 048
     Dates: start: 20121226
  57. PREDNISOLONE. [Suspect]
     Active Substance: PREDNISOLONE
     Route: 048
     Dates: start: 20090617, end: 20090728
  58. METHYLPREDNISOLONE. [Suspect]
     Active Substance: METHYLPREDNISOLONE
     Route: 048
     Dates: start: 20080612, end: 20080618
  59. METHYLPREDNISOLONE. [Suspect]
     Active Substance: METHYLPREDNISOLONE
     Route: 048
     Dates: start: 20080702, end: 20080715
  60. NU-LOTAN [Concomitant]
     Active Substance: LOSARTAN POTASSIUM
     Route: 048
     Dates: start: 20080604, end: 20080701
  61. NU-LOTAN [Concomitant]
     Active Substance: LOSARTAN POTASSIUM
     Route: 048
     Dates: start: 20080702, end: 20110410
  62. SELBEX [Concomitant]
     Active Substance: TEPRENONE
     Indication: GASTRIC ULCER
     Route: 048
     Dates: start: 20080820, end: 20120212
  63. WARFARIN                           /00014803/ [Concomitant]
     Active Substance: WARFARIN
     Indication: PROPHYLAXIS
     Route: 048
     Dates: end: 20090120
  64. TRYPTANOL [Concomitant]
     Active Substance: AMITRIPTYLINE
     Route: 048
     Dates: start: 20080520, end: 20081019
  65. RIZE [Concomitant]
     Active Substance: CLOTIAZEPAM
     Indication: DEPRESSION
     Route: 048
     Dates: start: 20080619, end: 20080715
  66. LYRICA [Concomitant]
     Active Substance: PREGABALIN
     Indication: HYPOAESTHESIA
     Dosage: UNK UNK, UNKNOWN FREQ.
     Route: 048
     Dates: start: 20110801
  67. PREDNISOLONE. [Suspect]
     Active Substance: PREDNISOLONE
     Route: 048
     Dates: start: 20100118, end: 20100214
  68. PREDNISOLONE. [Suspect]
     Active Substance: PREDNISOLONE
     Route: 048
     Dates: start: 20100926, end: 20101121
  69. METHYLPREDNISOLONE. [Suspect]
     Active Substance: METHYLPREDNISOLONE
     Route: 048
     Dates: start: 20081020, end: 20081118
  70. METHYLPREDNISOLONE. [Suspect]
     Active Substance: METHYLPREDNISOLONE
     Route: 048
     Dates: start: 20081119, end: 20081125
  71. WARFARIN                           /00014803/ [Concomitant]
     Active Substance: WARFARIN
     Route: 048
     Dates: start: 20090121, end: 20090728
  72. BACTRAMIN [Concomitant]
     Active Substance: SULFAMETHOXAZOLE\TRIMETHOPRIM
     Indication: PROPHYLAXIS
     Route: 048
     Dates: start: 20080526, end: 20090616
  73. CRESTOR [Concomitant]
     Active Substance: ROSUVASTATIN CALCIUM
     Indication: HYPERLIPIDAEMIA
     Route: 048
     Dates: start: 20080606, end: 20080819
  74. IMURAN [Concomitant]
     Active Substance: AZATHIOPRINE
     Indication: PYREXIA
     Route: 048
     Dates: start: 20101122, end: 20101219
  75. IMURAN [Concomitant]
     Active Substance: AZATHIOPRINE
     Route: 048
     Dates: start: 20121119, end: 20130120
  76. TACROLIMUS. [Suspect]
     Active Substance: TACROLIMUS
     Route: 048
     Dates: start: 20111121
  77. PREDNISOLONE. [Suspect]
     Active Substance: PREDNISOLONE
     Route: 048
     Dates: start: 20110801, end: 20111120
  78. PREDNISOLONE. [Suspect]
     Active Substance: PREDNISOLONE
     Route: 048
     Dates: start: 20140303, end: 20140609
  79. METHYLPREDNISOLONE. [Suspect]
     Active Substance: METHYLPREDNISOLONE
     Route: 048
     Dates: start: 20080820, end: 20080916
  80. TRAMCET [Suspect]
     Active Substance: ACETAMINOPHEN\TRAMADOL
     Indication: OSTEONECROSIS
     Dosage: UNK UNK, UNKNOWN FREQ.
     Route: 065
     Dates: end: 20080603
  81. PARIET [Concomitant]
     Active Substance: RABEPRAZOLE SODIUM
     Indication: PROPHYLAXIS
     Route: 048
     Dates: start: 20080820
  82. WARFARIN                           /00014803/ [Concomitant]
     Active Substance: WARFARIN
     Route: 048
     Dates: start: 20090824, end: 20141022
  83. FOSAMAC [Concomitant]
     Active Substance: ALENDRONATE SODIUM
     Indication: PROPHYLAXIS
     Route: 048
     Dates: start: 20100118
  84. GASLON [Concomitant]
     Active Substance: IRSOGLADINE MALEATE
     Indication: PROPHYLAXIS
     Route: 048
     Dates: start: 20120213, end: 20121225
  85. WARFARIN                           /00014803/ [Concomitant]
     Active Substance: WARFARIN
     Route: 048
     Dates: start: 20090729, end: 20090823
  86. TRYPTANOL [Concomitant]
     Active Substance: AMITRIPTYLINE
     Indication: DEPRESSION
     Route: 048
     Dates: end: 20080519

REACTIONS (9)
  - Weight increased [Not Recovered/Not Resolved]
  - Hypoaesthesia [Recovering/Resolving]
  - Blood immunoglobulin G increased [Recovered/Resolved]
  - Pyrexia [Recovered/Resolved]
  - Osteonecrosis [Not Recovered/Not Resolved]
  - Nausea [Recovering/Resolving]
  - Essential tremor [Recovering/Resolving]
  - Osteonecrosis [Not Recovered/Not Resolved]
  - Intentional product use issue [Unknown]

NARRATIVE: CASE EVENT DATE: 20080716
